FAERS Safety Report 4559410-4 (Version None)
Quarter: 2005Q1

REPORT INFORMATION
  Report Type: 
  Country: None (occurrence: None)
  Receive Date: 20050119
  Receipt Date: 20041206
  Transmission Date: 20050727
  Serious: Yes (Hospitalization)
  Sender: FDA-Public Use
  Company Number: 033-0906-M0000025

PATIENT
  Age: 61 Year
  Sex: Male
  Weight: 82 kg

DRUGS (5)
  1. QUINAPRIL HCL [Suspect]
     Indication: ISCHAEMIA
     Dosage: 10 MG 1 IN 1 D ORAL
     Route: 048
     Dates: start: 20000922, end: 20031027
  2. ACEBUTOLOL          (AETBUTOLOL) [Concomitant]
  3. GLYBURIDE [Concomitant]
  4. ACETYLSALICYLIC ACID SRT [Concomitant]
  5. HEPARIN [Concomitant]

REACTIONS (1)
  - ATRIAL FIBRILLATION [None]
